FAERS Safety Report 4716082-3 (Version None)
Quarter: 2005Q3

REPORT INFORMATION
  Report Type: 
  Country: None (occurrence: None)
  Receive Date: 20050718
  Receipt Date: 20050711
  Transmission Date: 20060218
  Serious: Yes (Hospitalization)
  Sender: FDA-Public Use
  Company Number: US-JNJFOC-20050702317

PATIENT
  Sex: Female
  Weight: 77.11 kg

DRUGS (1)
  1. DURAGESIC-100 [Suspect]
     Route: 062
     Dates: start: 20040701

REACTIONS (1)
  - KIDNEY INFECTION [None]
